FAERS Safety Report 9648803 (Version 1)
Quarter: 2013Q4

REPORT INFORMATION
  Report Type: Spontaneous
  Country: US (occurrence: None)
  Receive Date: 20131025
  Receipt Date: 20131025
  Transmission Date: 20140711
  Serious: No
  Sender: FDA-Public Use
  Company Number: None

PATIENT
  Age: 75 Year
  Sex: Male

DRUGS (1)
  1. ZYTIGA [Suspect]
     Dates: start: 20130505

REACTIONS (4)
  - Cellulitis [None]
  - Urinary tract infection [None]
  - Feeling abnormal [None]
  - Dementia [None]
